FAERS Safety Report 11239481 (Version 4)
Quarter: 2015Q3

REPORT INFORMATION
  Report Type: Report from Study
  Country: BR (occurrence: BR)
  Receive Date: 20150706
  Receipt Date: 20150909
  Transmission Date: 20151125
  Serious: Yes (Hospitalization)
  Sender: FDA-Public Use
  Company Number: BR-ROCHE-1466728

PATIENT
  Age: 65 Year
  Sex: Female
  Weight: 59 kg

DRUGS (9)
  1. ACTEMRA [Suspect]
     Active Substance: TOCILIZUMAB
     Indication: RHEUMATOID ARTHRITIS
     Route: 065
     Dates: start: 20140722
  2. OLMETEC [Concomitant]
     Active Substance: OLMESARTAN MEDOXOMIL
     Dosage: DOSE REPORTED AS 40/12.5 MG
     Route: 065
  3. SELOZOK [Concomitant]
     Active Substance: METOPROLOL SUCCINATE
  4. LEVOCETIRIZINE [Concomitant]
     Active Substance: LEVOCETIRIZINE
  5. ACTEMRA [Suspect]
     Active Substance: TOCILIZUMAB
     Route: 065
     Dates: start: 20150601
  6. LIPLESS [Concomitant]
     Active Substance: CIPROFIBRATE
     Indication: BLOOD TRIGLYCERIDES
  7. OLMETEC [Concomitant]
     Active Substance: OLMESARTAN MEDOXOMIL
     Route: 065
  8. AMITRIPTYLINE [Concomitant]
     Active Substance: AMITRIPTYLINE
  9. LEVOTHYROXINE. [Concomitant]
     Active Substance: LEVOTHYROXINE

REACTIONS (7)
  - Blood triglycerides increased [Not Recovered/Not Resolved]
  - Haemorrhage [Not Recovered/Not Resolved]
  - Uterine neoplasm [Unknown]
  - Urinary tract infection [Unknown]
  - Hypertension [Not Recovered/Not Resolved]
  - Endometrial adenocarcinoma [Unknown]
  - Nasopharyngitis [Not Recovered/Not Resolved]

NARRATIVE: CASE EVENT DATE: 20140921
